FAERS Safety Report 4316111-5 (Version None)
Quarter: 2004Q1

REPORT INFORMATION
  Report Type: 
  Country: None (occurrence: None)
  Receive Date: 20040310
  Receipt Date: 20020123
  Transmission Date: 20041129
  Serious: Yes (Hospitalization)
  Sender: FDA-Public Use
  Company Number: 30018675-01I27G40-1

PATIENT
  Age: 62 Year
  Sex: Female
  Weight: 51.4 kg

DRUGS (14)
  1. EXTRANEAL [Suspect]
     Indication: DIALYSIS
     Dosage: 7.5% ICODEXTRIN 2L QD IP
     Route: 033
     Dates: start: 20011031
  2. B-COMBIN SAD [Concomitant]
  3. FOLIC ACID DAK [Concomitant]
  4. APOVIT C-VITAMIN [Concomitant]
  5. CALCIUM CARBONATE (CALCIUM CARBONATE) [Concomitant]
  6. ZOCOR [Concomitant]
  7. PARAFFIN OIL [Concomitant]
  8. TODOLAC (ETODOLAC) [Concomitant]
  9. CORODIL (ENALAPRIL) [Concomitant]
  10. NORVASC [Concomitant]
  11. DIURAL (FUROSEMIDE) [Concomitant]
  12. EPREX [Concomitant]
  13. ETALPHA (ALFACALCIDOL) [Concomitant]
  14. FERRO DURETTER (FERROUSE SULFATE) [Concomitant]

REACTIONS (4)
  - ABDOMINAL PAIN [None]
  - ABDOMINAL TENDERNESS [None]
  - PERITONEAL FLUID ANALYSIS ABNORMAL [None]
  - PYREXIA [None]
